FAERS Safety Report 25190085 (Version 1)
Quarter: 2025Q2

REPORT INFORMATION
  Report Type: Spontaneous
  Country: US (occurrence: US)
  Receive Date: 20250411
  Receipt Date: 20250411
  Transmission Date: 20250716
  Serious: No
  Sender: VERTEX
  Company Number: US-VERTEX PHARMACEUTICALS-2025-005285

PATIENT
  Age: 24 Year
  Sex: Female
  Weight: 88 kg

DRUGS (1)
  1. TRIKAFTA [Suspect]
     Active Substance: ELEXACAFTOR\IVACAFTOR\TEZACAFTOR
     Indication: Cystic fibrosis
     Route: 048
     Dates: start: 2021

REACTIONS (7)
  - Weight increased [Unknown]
  - Diabetes mellitus [Unknown]
  - Menstruation irregular [Unknown]
  - Fatigue [Unknown]
  - Sluggishness [Unknown]
  - Pain [Unknown]
  - Liver function test increased [Unknown]
